FAERS Safety Report 14776920 (Version 15)
Quarter: 2021Q2

REPORT INFORMATION
  Report Type: Other
  Country: CA (occurrence: CA)
  Receive Date: 20180419
  Receipt Date: 20210609
  Transmission Date: 20210716
  Serious: Yes (Hospitalization, Other)
  Sender: FDA-Public Use
  Company Number: CA-ROCHE-1412884

PATIENT
  Age: 77 Year
  Sex: Female

DRUGS (24)
  1. RITUXAN [Suspect]
     Active Substance: RITUXIMAB
     Indication: DERMATOMYOSITIS
     Route: 042
     Dates: start: 2014
  2. RITUXAN [Suspect]
     Active Substance: RITUXIMAB
     Indication: MYOSITIS
     Dosage: LAST DOSE OF RITUXIMAB 05/APR/2018.
     Route: 042
     Dates: start: 20141205
  3. COUMADIN [Concomitant]
     Active Substance: WARFARIN SODIUM
  4. PREDNISONE. [Concomitant]
     Active Substance: PREDNISONE
  5. FOLIC ACID. [Concomitant]
     Active Substance: FOLIC ACID
  6. RITUXAN [Suspect]
     Active Substance: RITUXIMAB
     Route: 042
     Dates: start: 20161004, end: 20161018
  7. METHYLPREDNISOLONE. [Suspect]
     Active Substance: METHYLPREDNISOLONE
     Indication: PREMEDICATION
     Route: 042
     Dates: start: 20140602, end: 20150506
  8. LOPERAMIDE [Concomitant]
     Active Substance: LOPERAMIDE
  9. METHYLPREDNISOLONE. [Suspect]
     Active Substance: METHYLPREDNISOLONE
     Route: 042
     Dates: start: 20181010
  10. RITUXAN [Suspect]
     Active Substance: RITUXIMAB
     Dosage: SINGLE DOSES (DAY 1 ONLY).
     Route: 042
     Dates: start: 20170411, end: 20171010
  11. DIPHENHYDRAMINE HYDROCHLORIDE. [Suspect]
     Active Substance: DIPHENHYDRAMINE HYDROCHLORIDE
     Indication: PREMEDICATION
     Route: 048
     Dates: start: 20140602, end: 20160412
  12. BENADRYL [Suspect]
     Active Substance: DIPHENHYDRAMINE HYDROCHLORIDE
     Indication: PRODUCT USED FOR UNKNOWN INDICATION
     Route: 048
  13. METFORMIN [Concomitant]
     Active Substance: METFORMIN HYDROCHLORIDE
  14. SEPTRA [Concomitant]
     Active Substance: SULFAMETHOXAZOLE\TRIMETHOPRIM
  15. RITUXAN [Suspect]
     Active Substance: RITUXIMAB
     Route: 042
     Dates: start: 20180405
  16. SULFATRIM [Concomitant]
     Active Substance: SULFAMETHOXAZOLE\TRIMETHOPRIM
     Indication: PROPHYLAXIS
  17. ALENDRONATE [Concomitant]
     Active Substance: ALENDRONATE SODIUM
  18. CALCIUM [Concomitant]
     Active Substance: CALCIUM
  19. METHYLPREDNISOLONE. [Suspect]
     Active Substance: METHYLPREDNISOLONE
     Indication: PRODUCT USED FOR UNKNOWN INDICATION
     Route: 042
     Dates: start: 20161004, end: 20161016
  20. LANSOPRAZOLE. [Concomitant]
     Active Substance: LANSOPRAZOLE
  21. IRON [Concomitant]
     Active Substance: IRON
  22. RITUXAN [Suspect]
     Active Substance: RITUXIMAB
     Indication: INTERSTITIAL LUNG DISEASE
     Dosage: SINGLE DOSES (DAY 1 ONLY)
     Route: 042
     Dates: start: 20140602, end: 20160412
  23. DIPHENHYDRAMINE HYDROCHLORIDE. [Suspect]
     Active Substance: DIPHENHYDRAMINE HYDROCHLORIDE
     Route: 048
     Dates: start: 20161004
  24. ACETAMINOPHEN. [Concomitant]
     Active Substance: ACETAMINOPHEN
     Indication: PREMEDICATION
     Route: 048
     Dates: start: 20140602

REACTIONS (32)
  - Somnolence [Unknown]
  - Fatigue [Recovered/Resolved]
  - Sinusitis [Not Recovered/Not Resolved]
  - Off label use [Unknown]
  - Blood pressure fluctuation [Unknown]
  - Asthenia [Unknown]
  - Blood pressure increased [Unknown]
  - Oxygen saturation decreased [Unknown]
  - Swelling face [Unknown]
  - Vomiting [Unknown]
  - Loss of consciousness [Unknown]
  - Dyspepsia [Unknown]
  - Bronchitis [Not Recovered/Not Resolved]
  - Eye swelling [Unknown]
  - Nasopharyngitis [Not Recovered/Not Resolved]
  - Respiratory rate increased [Unknown]
  - Blood pressure fluctuation [Unknown]
  - Infusion related reaction [Unknown]
  - Somnolence [Unknown]
  - Vomiting [Unknown]
  - Heart rate increased [Unknown]
  - Dyspnoea [Not Recovered/Not Resolved]
  - Nausea [Unknown]
  - Diarrhoea [Unknown]
  - Blood pressure systolic increased [Unknown]
  - Heart rate increased [Unknown]
  - Erythema [Unknown]
  - Headache [Recovered/Resolved]
  - Hot flush [Unknown]
  - Fatigue [Not Recovered/Not Resolved]
  - Abdominal pain upper [Unknown]
  - Iron deficiency [Unknown]

NARRATIVE: CASE EVENT DATE: 2014
